FAERS Safety Report 7036451-9 (Version None)
Quarter: 2010Q4

REPORT INFORMATION
  Report Type: 
  Country: None (occurrence: None)
  Receive Date: 20101011
  Receipt Date: 20100929
  Transmission Date: 20110411
  Serious: Yes (Hospitalization)
  Sender: FDA-Public Use
  Company Number: US-BIOGENIDEC-2010BI033895

PATIENT
  Age: 51 Year
  Sex: Female

DRUGS (12)
  1. TYSABRI [Suspect]
     Indication: MULTIPLE SCLEROSIS
     Route: 042
     Dates: start: 20071002
  2. VICODIN ES [Concomitant]
     Indication: PAIN
     Route: 048
  3. VICODIN ES [Concomitant]
  4. ROBAXIN [Concomitant]
     Indication: MUSCLE SPASMS
     Route: 048
  5. SYNTHROID [Concomitant]
     Dosage: DOSE UNIT:25
     Route: 048
  6. NEXIUM [Concomitant]
     Route: 048
  7. WELLBUTRIN SR [Concomitant]
     Route: 048
  8. MULTI-VITAMIN [Concomitant]
     Route: 048
  9. VITAMIN D [Concomitant]
     Dosage: DOSE UNIT:1000
     Route: 048
  10. CALCIUM CARBONATE [Concomitant]
     Route: 048
  11. ULTRAM [Concomitant]
  12. ADVIL [Concomitant]

REACTIONS (1)
  - INTERVERTEBRAL DISC PROTRUSION [None]
